FAERS Safety Report 15995679 (Version 1)
Quarter: 2019Q1

REPORT INFORMATION
  Report Type: Spontaneous
  Country: GB (occurrence: GB)
  Receive Date: 20190222
  Receipt Date: 20190222
  Transmission Date: 20190418
  Serious: Yes (Other)
  Sender: FDA-Public Use
  Company Number: GB-BAUSCH-BL-2019-005268

PATIENT
  Age: 32 Year
  Sex: Female
  Weight: 63.5 kg

DRUGS (2)
  1. FEXOFENADINE HYDROCHLORIDE. [Concomitant]
     Active Substance: FEXOFENADINE HYDROCHLORIDE
     Indication: PRODUCT USED FOR UNKNOWN INDICATION
  2. VENLAFAXINE [Suspect]
     Active Substance: VENLAFAXINE HYDROCHLORIDE
     Indication: ANXIETY
     Route: 048
     Dates: start: 20190128

REACTIONS (7)
  - Restlessness [Unknown]
  - Muscle twitching [Unknown]
  - Feeling abnormal [Unknown]
  - Confusional state [Unknown]
  - Fatigue [Unknown]
  - Mydriasis [Unknown]
  - Insomnia [Unknown]

NARRATIVE: CASE EVENT DATE: 20190128
